FAERS Safety Report 5128602-8 (Version None)
Quarter: 2006Q4

REPORT INFORMATION
  Report Type: 
  Country: None (occurrence: None)
  Receive Date: 20061011
  Receipt Date: 20060929
  Transmission Date: 20070319
  Serious: Yes (Hospitalization)
  Sender: FDA-Public Use
  Company Number: 229290

PATIENT
  Age: 44 Year
  Sex: Male

DRUGS (3)
  1. RAPTIVA [Suspect]
     Indication: PSORIASIS
     Dosage: 0.66 ML 1/WEEK, SUBCUTANEOUS; 0.95 ML, 1/WEEK, SUBCUTANEOUS
     Route: 058
     Dates: start: 20060331
  2. GEMFIBROZIL [Concomitant]
  3. LEXAPRO (ESCITALOPRAM OXALATE) [Concomitant]

REACTIONS (8)
  - ABDOMINAL PAIN [None]
  - BACK PAIN [None]
  - BACTERIAL INFECTION [None]
  - DIARRHOEA [None]
  - DYSPEPSIA [None]
  - NAUSEA [None]
  - VIRAL INFECTION [None]
  - VOMITING [None]
